FAERS Safety Report 6145003-4 (Version None)
Quarter: 2009Q2

REPORT INFORMATION
  Report Type: 
  Country: None (occurrence: None)
  Receive Date: 20090406
  Receipt Date: 20090323
  Transmission Date: 20091009
  Serious: No
  Sender: FDA-Public Use
  Company Number: JP-ELI_LILLY_AND_COMPANY-JP200903002804

PATIENT
  Sex: Female

DRUGS (3)
  1. ZYPREXA [Suspect]
     Indication: SCHIZOPHRENIA
     Dosage: 20 MG, DAILY (1/D)
     Route: 048
     Dates: start: 20090306, end: 20090310
  2. DEPAKENE [Concomitant]
     Indication: SCHIZOPHRENIA
     Dosage: 600 MG, DAILY (1/D)
     Route: 048
     Dates: start: 20090306
  3. BARNETIL [Concomitant]
     Indication: SCHIZOPHRENIA
     Dosage: 200 MG, DAILY (1/D)
     Route: 048
     Dates: start: 20090306

REACTIONS (1)
  - IRRITABILITY [None]
